FAERS Safety Report 5197580-8 (Version None)
Quarter: 2007Q1

REPORT INFORMATION
  Report Type: 
  Country: None (occurrence: None)
  Receive Date: 20070103
  Receipt Date: 20061204
  Transmission Date: 20070707
  Serious: Yes (Hospitalization, Other)
  Sender: FDA-Public Use
  Company Number: US-PFIZER INC-2006015746

PATIENT
  Sex: Female

DRUGS (2)
  1. CELEBREX [Suspect]
     Route: 048
  2. VIOXX [Suspect]
     Route: 048

REACTIONS (3)
  - CARDIAC DISORDER [None]
  - INJURY [None]
  - MYOCARDIAL INFARCTION [None]
